FAERS Safety Report 23790332 (Version 1)
Quarter: 2024Q2

REPORT INFORMATION
  Report Type: Spontaneous
  Country: SE (occurrence: SE)
  Receive Date: 20240427
  Receipt Date: 20240427
  Transmission Date: 20240716
  Serious: Yes (Other)
  Sender: FDA-Public Use
  Company Number: SE-TEVA-VS-3185657

PATIENT
  Sex: Female

DRUGS (1)
  1. ATORVASTATIN [Suspect]
     Active Substance: ATORVASTATIN
     Indication: Essential hypertension
     Dosage: ACTAVIS
     Route: 065
     Dates: end: 20231113

REACTIONS (2)
  - Epidermal necrosis [Unknown]
  - Myopathy [Unknown]

NARRATIVE: CASE EVENT DATE: 20231113
